FAERS Safety Report 8124459-1 (Version None)
Quarter: 2012Q1

REPORT INFORMATION
  Report Type: 
  Country: None (occurrence: None)
  Receive Date: 20120209
  Receipt Date: 20120131
  Transmission Date: 20120608
  Serious: Yes (Other)
  Sender: FDA-Public Use
  Company Number: AR-BAYER-2012-010893

PATIENT
  Age: 45 Year
  Sex: Female

DRUGS (13)
  1. THIORIDAZINE HCL [Suspect]
     Indication: TUBERCULOSIS
     Dosage: DAILY DOSE 25 MG
  2. THIORIDAZINE HCL [Suspect]
     Dosage: DAILY DOSE 75 MG
  3. THIORIDAZINE HCL [Suspect]
     Dosage: DAILY DOSE 100 MG
  4. LINEZOLID [Suspect]
     Indication: TUBERCULOSIS
     Dosage: 600 MG, BID
  5. PARA AMINOSALICYLIC ACID [Suspect]
     Indication: TUBERCULOSIS
  6. THIORIDAZINE HCL [Suspect]
     Dosage: DAILY DOSE 200 MG
  7. THIORIDAZINE HCL [Suspect]
     Dosage: DAILY DOSE 175 MG
  8. LINEZOLID [Suspect]
     Dosage: DAILY DOSE 600 MG
  9. THIORIDAZINE HCL [Suspect]
     Dosage: DAILY DOSE 125 MG
  10. CYCLOSERINE [Suspect]
     Indication: TUBERCULOSIS
  11. THIORIDAZINE HCL [Suspect]
     Dosage: DAILY DOSE 50 MG
  12. MOXIFLOXACIN [Suspect]
     Indication: TUBERCULOSIS
  13. THIORIDAZINE HCL [Suspect]
     Dosage: DAILY DOSE 150 MG

REACTIONS (1)
  - PANCYTOPENIA [None]
